FAERS Safety Report 11282341 (Version 1)
Quarter: 2015Q3

REPORT INFORMATION
  Report Type: Spontaneous
  Country: GB (occurrence: GB)
  Receive Date: 20150720
  Receipt Date: 20150720
  Transmission Date: 20151125
  Serious: Yes (Life-Threatening, Hospitalization)
  Sender: FDA-Public Use
  Company Number: GB-AMGEN-GBRSP2015070794

PATIENT
  Age: 76 Year
  Sex: Female
  Weight: 80 kg

DRUGS (15)
  1. XGEVA [Suspect]
     Active Substance: DENOSUMAB
     Indication: METASTASES TO BONE
     Dosage: 120 MG, UNK
     Route: 058
     Dates: start: 20150421, end: 20150421
  2. CLOPIDOGREL [Concomitant]
     Active Substance: CLOPIDOGREL BISULFATE
  3. GLICLAZIDE [Concomitant]
     Active Substance: GLICLAZIDE
  4. ADIZEM-XL [Concomitant]
     Active Substance: DILTIAZEM HYDROCHLORIDE
  5. AMITRIPTYLINE [Concomitant]
     Active Substance: AMITRIPTYLINE
  6. FOSTAIR [Concomitant]
     Active Substance: BECLOMETHASONE\FORMOTEROL
  7. HYPROMELLOSE [Concomitant]
     Active Substance: HYPROMELLOSES
  8. MORPHINE SULFATE. [Concomitant]
     Active Substance: MORPHINE SULFATE
  9. SALBUTAMOL [Concomitant]
     Active Substance: ALBUTEROL
  10. OMEPRAZOLE. [Concomitant]
     Active Substance: OMEPRAZOLE
  11. RAMIPRIL. [Concomitant]
     Active Substance: RAMIPRIL
  12. PARACETAMOL [Concomitant]
     Active Substance: ACETAMINOPHEN
  13. EXEMESTANE. [Concomitant]
     Active Substance: EXEMESTANE
  14. METOCLOPRAMIDE. [Concomitant]
     Active Substance: METOCLOPRAMIDE
  15. METFORMIN [Concomitant]
     Active Substance: METFORMIN HYDROCHLORIDE

REACTIONS (2)
  - Tetany [Unknown]
  - Hypocalcaemia [Recovered/Resolved]

NARRATIVE: CASE EVENT DATE: 20150430
